FAERS Safety Report 6490192-5 (Version None)
Quarter: 2009Q4

REPORT INFORMATION
  Report Type: 
  Country: None (occurrence: None)
  Receive Date: 20091124
  Receipt Date: 20090625
  Transmission Date: 20100525
  Serious: Yes (Hospitalization)
  Sender: FDA-Public Use
  Company Number: APP200900346

PATIENT
  Sex: Female

DRUGS (2)
  1. PENTAM [Suspect]
     Indication: DRUG USE FOR UNKNOWN INDICATION
     Dosage: 300 MG, ONCE, INTRAVENOUS
     Route: 042
  2. COLLEAGUE 2006 INFUSION PUMP [Suspect]

REACTIONS (1)
  - VOMITING [None]
